FAERS Safety Report 7620722-9 (Version None)
Quarter: 2011Q3

REPORT INFORMATION
  Report Type: 
  Country: None (occurrence: None)
  Receive Date: 20110719
  Receipt Date: 20110523
  Transmission Date: 20111222
  Serious: Yes (Other)
  Sender: FDA-Public Use
  Company Number: JP-GLAXOSMITHKLINE-B0722321A

PATIENT
  Age: 76 Year
  Sex: Female

DRUGS (1)
  1. VALTREX [Suspect]
     Indication: HERPES ZOSTER
     Route: 048
     Dates: start: 20090529

REACTIONS (5)
  - MALAISE [None]
  - RENAL FAILURE ACUTE [None]
  - VOMITING [None]
  - NAUSEA [None]
  - DECREASED APPETITE [None]
